FAERS Safety Report 14536788 (Version 1)
Quarter: 2018Q1

REPORT INFORMATION
  Report Type: Report from Study
  Country: US (occurrence: US)
  Receive Date: 20180215
  Receipt Date: 20180215
  Transmission Date: 20180509
  Serious: Yes (Hospitalization)
  Sender: FDA-Public Use
  Company Number: US-BAYER-2018-021248

PATIENT
  Age: 66 Year
  Sex: Male

DRUGS (1)
  1. STIVARGA [Suspect]
     Active Substance: REGORAFENIB
     Indication: HEPATOCELLULAR CARCINOMA
     Dosage: DAILY DOSE 80 MG
     Route: 048
     Dates: start: 20180130, end: 20180205

REACTIONS (7)
  - Nausea [None]
  - Hyperhidrosis [None]
  - Off label use [None]
  - Vomiting [None]
  - Nausea [None]
  - Swelling face [None]
  - Tongue ulceration [None]

NARRATIVE: CASE EVENT DATE: 2018
